FAERS Safety Report 6189100-6 (Version None)
Quarter: 2009Q2

REPORT INFORMATION
  Report Type: 
  Country: None (occurrence: None)
  Receive Date: 20090513
  Receipt Date: 20090216
  Transmission Date: 20091009
  Serious: No
  Sender: FDA-Public Use
  Company Number: US-BAYER-200910607BCC

PATIENT
  Sex: Female
  Weight: 147 kg

DRUGS (5)
  1. MIDOL [Suspect]
     Indication: DYSMENORRHOEA
     Route: 048
  2. MIDOL [Suspect]
     Dosage: TOTAL DAILY DOSE: 220 MG  UNIT DOSE: 220 MG
     Route: 048
     Dates: start: 20090316
  3. HEART MEDICATION [Concomitant]
     Indication: SUPRAVENTRICULAR TACHYCARDIA
  4. THYROID MEDICATION [Concomitant]
     Indication: HYPOTHYROIDISM
  5. DIABETES MEDICATION [Concomitant]
     Indication: DIABETES MELLITUS

REACTIONS (1)
  - DYSMENORRHOEA [None]
